FAERS Safety Report 9219183 (Version 1)
Quarter: 2013Q2

REPORT INFORMATION
  Report Type: Spontaneous
  Country: US (occurrence: None)
  Receive Date: 20130404
  Receipt Date: 20130404
  Transmission Date: 20140414
  Serious: Yes (Life-Threatening)
  Sender: FDA-Public Use
  Company Number: 2013-US-0094

PATIENT
  Age: 50 Year
  Sex: Female

DRUGS (3)
  1. ABSTRAL [Suspect]
     Indication: PROCEDURAL PAIN
     Dosage: PRN
     Route: 060
     Dates: start: 20111230
  2. OXYCONTIN (OXYCODONE HYDROCHLORIDE) [Concomitant]
  3. OXYCODONE (OXYCODONE HYDROCHLORIDE) (OXYCODONE) [Concomitant]

REACTIONS (2)
  - Off label use [None]
  - Metastatic squamous cell carcinoma [None]
